FAERS Safety Report 9224424 (Version 1)
Quarter: 2013Q1

REPORT INFORMATION
  Report Type: Spontaneous
  Country: US (occurrence: None)
  Receive Date: 20120910
  Receipt Date: 20120910
  Transmission Date: 20140127
  Serious: No
  Sender: FDA-Public Use
  Company Number: 1207USA005249

PATIENT
  Age: 78 Year
  Sex: Female

DRUGS (15)
  1. ZIOPTAN (TAFLUPROST) EYE DROPS, SOLUTION 0.0015% [Suspect]
     Indication: GLAUCOMA
     Route: 050
     Dates: start: 20120627
  2. LIOTREL (AMLODIPINE BESYLATE, BENAZEPRIL HYDROCHLORIDE) [Concomitant]
  3. LIPITOR (ATORVASTATIN CALCIUM) [Concomitant]
  4. TORSEMIDE [Concomitant]
  5. ZAROXOLYN (METOLAZONE) [Concomitant]
  6. GLYBURIDE (GLYBURIDE) [Concomitant]
  7. VITAMINS (UNSPECIFIED) (VITAMINS (UNSPECIFIED)) [Concomitant]
  8. COREG (CARVEDILOL) [Concomitant]
  9. FEOSOL (FERROUS SULFATE) [Concomitant]
  10. CATAPRES (CLONIDINE HYDROCHLORIDE) [Concomitant]
  11. TRAMADOL HYDROCHLORIDE (TRAMADOL HYDROCHLORIDE) [Concomitant]
  12. PROZAC (FLUOXETINE HYDROCHLORIDE) [Concomitant]
  13. OMEPRAZOLE (OMEPRAZOLE) [Concomitant]
  14. ASPRIIN (ASPIRIN) [Concomitant]
  15. ALPHAGAN P (BRIMONIDINE TARTRATE) [Concomitant]

REACTIONS (3)
  - Pruritus [None]
  - Eye pruritus [None]
  - Blood glucose increased [None]
